FAERS Safety Report 20523916 (Version 2)
Quarter: 2022Q1

REPORT INFORMATION
  Report Type: Spontaneous
  Country: US (occurrence: US)
  Receive Date: 20220228
  Receipt Date: 20220309
  Transmission Date: 20220423
  Serious: No
  Sender: FDA-Public Use
  Company Number: US-AMGEN-USASP2022026488

PATIENT
  Age: 64 Year
  Sex: Male
  Weight: 103.4 kg

DRUGS (2)
  1. REPATHA [Suspect]
     Active Substance: EVOLOCUMAB
     Indication: Hypercholesterolaemia
     Dosage: 420 MG/3.5 ML, QMO
     Route: 065
     Dates: start: 20220213
  2. REPATHA [Suspect]
     Active Substance: EVOLOCUMAB
     Indication: Hyperlipidaemia
     Dosage: UNK
     Route: 065

REACTIONS (1)
  - Drug dose omission by device [Unknown]

NARRATIVE: CASE EVENT DATE: 20220213
